FAERS Safety Report 22213129 (Version 1)
Quarter: 2023Q2

REPORT INFORMATION
  Report Type: Spontaneous
  Country: US (occurrence: None)
  Receive Date: 20230414
  Receipt Date: 20230414
  Transmission Date: 20230722
  Serious: Yes (Disabling)
  Sender: FDA-Public Use
  Company Number: None

PATIENT
  Age: 43 Year
  Sex: Male
  Weight: 119.25 kg

DRUGS (8)
  1. LEVOFLOXACIN [Suspect]
     Active Substance: LEVOFLOXACIN
     Indication: Sinusitis
     Dosage: OTHER QUANTITY : 1 TABLET(S);?FREQUENCY : DAILY;?
     Route: 048
     Dates: start: 20221006, end: 20221013
  2. WELLBUTRIN XL [Concomitant]
     Active Substance: BUPROPION HYDROCHLORIDE
  3. NEXIUM [Concomitant]
     Active Substance: ESOMEPRAZOLE MAGNESIUM
  4. COZAAR [Concomitant]
     Active Substance: LOSARTAN POTASSIUM
  5. LIPITOR [Concomitant]
     Active Substance: ATORVASTATIN CALCIUM
  6. TYLENOL [Concomitant]
     Active Substance: ACETAMINOPHEN
  7. VITAMIN B-COMPLEX [Concomitant]
     Active Substance: DEXPANTHENOL\NIACINAMIDE\PYRIDOXINE HYDROCHLORIDE\RIBOFLAVIN 5^-PHOSPHATE SODIUM\THIAMINE HYDROCHLOR
  8. MAGNESIUM [Concomitant]
     Active Substance: MAGNESIUM

REACTIONS (18)
  - Tendon pain [None]
  - Arthralgia [None]
  - Musculoskeletal pain [None]
  - Sleep disorder [None]
  - Ulnar neuritis [None]
  - Disease recurrence [None]
  - Carpal tunnel syndrome [None]
  - Anxiety [None]
  - Irritability [None]
  - Hot flush [None]
  - Nausea [None]
  - Exercise tolerance decreased [None]
  - Asthenia [None]
  - Hypertension [None]
  - Impaired quality of life [None]
  - Toxicity to various agents [None]
  - Tendon disorder [None]
  - Frustration tolerance decreased [None]

NARRATIVE: CASE EVENT DATE: 20221013
